APPROVED DRUG PRODUCT: DOXORUBICIN HYDROCHLORIDE
Active Ingredient: DOXORUBICIN HYDROCHLORIDE
Strength: 2MG/ML
Dosage Form/Route: INJECTABLE;INJECTION
Application: A091495 | Product #001 | TE Code: AP
Applicant: SAGENT PHARMACEUTICALS INC
Approved: Mar 18, 2013 | RLD: No | RS: No | Type: RX